FAERS Safety Report 24440765 (Version 2)
Quarter: 2024Q4

REPORT INFORMATION
  Report Type: Spontaneous
  Country: BR (occurrence: BR)
  Receive Date: 20241016
  Receipt Date: 20241021
  Transmission Date: 20250114
  Serious: Yes (Other)
  Sender: BIOGEN
  Company Number: BR-BIOGEN-2024BI01286439

PATIENT
  Sex: Female
  Weight: 59.5 kg

DRUGS (2)
  1. TECFIDERA [Suspect]
     Active Substance: DIMETHYL FUMARATE
     Indication: Multiple sclerosis
     Route: 050
     Dates: start: 202112, end: 202202
  2. REBIF [Concomitant]
     Active Substance: INTERFERON BETA-1A
     Indication: Product used for unknown indication
     Route: 050

REACTIONS (3)
  - Asthenia [Unknown]
  - Maternal exposure during pregnancy [Recovered/Resolved]
  - Complication of delivery [Unknown]

NARRATIVE: CASE EVENT DATE: 20220101
